FAERS Safety Report 4269524-4 (Version None)
Quarter: 2004Q1

REPORT INFORMATION
  Report Type: 
  Country: None (occurrence: None)
  Receive Date: 20040112
  Receipt Date: 20040112
  Transmission Date: 20041129
  Serious: Yes (Hospitalization)
  Sender: FDA-Public Use
  Company Number: None

PATIENT
  Age: 72 Year
  Sex: Male

DRUGS (5)
  1. AMITRIPTYLINE HCL [Suspect]
     Indication: NEUROPATHY
     Dosage: 100 MG BID
     Dates: start: 19971201
  2. METFORMIN HCL [Concomitant]
  3. LANSOPRAZOLE [Concomitant]
  4. GABAPENTIN [Concomitant]
  5. NAPROXEN [Concomitant]

REACTIONS (1)
  - SYNCOPE [None]
